FAERS Safety Report 5738819-7 (Version None)
Quarter: 2008Q2

REPORT INFORMATION
  Report Type: 
  Country: None (occurrence: None)
  Receive Date: 20080515
  Receipt Date: 20080314
  Transmission Date: 20081010
  Serious: No
  Sender: FDA-Public Use
  Company Number: A0716738A

PATIENT
  Age: 62 Year
  Sex: Female

DRUGS (1)
  1. VERAMYST [Suspect]
     Dosage: 1SPR PER DAY
     Route: 045
     Dates: start: 20080228, end: 20080312

REACTIONS (1)
  - EAR DISCOMFORT [None]
